FAERS Safety Report 18124609 (Version 2)
Quarter: 2020Q4

REPORT INFORMATION
  Report Type: Spontaneous
  Country: US (occurrence: US)
  Receive Date: 20200807
  Receipt Date: 20201202
  Transmission Date: 20210113
  Serious: No
  Sender: FDA-Public Use
  Company Number: NVSC2020US216863

PATIENT
  Sex: Female

DRUGS (3)
  1. NATACYN [Suspect]
     Active Substance: NATAMYCIN
     Indication: EYE ULCER
     Dosage: 5 %, TID
     Route: 065
     Dates: start: 20200116
  2. NATACYN [Suspect]
     Active Substance: NATAMYCIN
     Dosage: 1 DROP EVERY TWO HOURS
     Route: 065
  3. NATACYN [Suspect]
     Active Substance: NATAMYCIN
     Dosage: 1 DRP, QD
     Route: 065

REACTIONS (3)
  - Product physical consistency issue [Unknown]
  - Eye swelling [Unknown]
  - Condition aggravated [Unknown]
